FAERS Safety Report 4486829-2 (Version None)
Quarter: 2004Q3

REPORT INFORMATION
  Report Type: 
  Country: None (occurrence: None)
  Receive Date: 20040921
  Receipt Date: 20040220
  Transmission Date: 20050211
  Serious: No
  Sender: FDA-Public Use
  Company Number: 163-20785-04020700

PATIENT
  Age: 81 Year
  Sex: Female

DRUGS (4)
  1. THALOMID [Suspect]
     Indication: MYELODYSPLASTIC SYNDROME
     Dosage: 150 MG, DAILY, ORAL
     Route: 048
     Dates: start: 20030224, end: 20030716
  2. PRILOSEC [Concomitant]
  3. XANAX [Concomitant]
  4. NORTRIPTYLINE HCL [Concomitant]

REACTIONS (7)
  - AMNESIA [None]
  - FATIGUE [None]
  - HAEMOGLOBIN DECREASED [None]
  - MEMORY IMPAIRMENT [None]
  - NAUSEA [None]
  - VOMITING [None]
  - WEIGHT DECREASED [None]
